FAERS Safety Report 22075252 (Version 2)
Quarter: 2023Q1

REPORT INFORMATION
  Report Type: Spontaneous
  Country: US (occurrence: US)
  Receive Date: 20230308
  Receipt Date: 20230331
  Transmission Date: 20230418
  Serious: No
  Sender: FDA-Public Use
  Company Number: US-JNJFOC-20230303414

PATIENT
  Age: 72 Year
  Sex: Female

DRUGS (8)
  1. WOMENS ROGAINE [Suspect]
     Active Substance: MINOXIDIL
     Indication: Alopecia
     Dosage: 1ML
     Route: 061
     Dates: start: 20210329, end: 20220329
  2. WOMENS ROGAINE [Suspect]
     Active Substance: MINOXIDIL
     Dosage: 1ML
     Route: 061
     Dates: start: 202204, end: 20230131
  3. ASPIRIN [Concomitant]
     Active Substance: ASPIRIN
     Indication: Cardiac disorder
     Route: 065
     Dates: start: 2018
  4. ATENOLOL [Concomitant]
     Active Substance: ATENOLOL
     Indication: Cardiac disorder
     Route: 065
     Dates: start: 2022
  5. IMDUR [Concomitant]
     Active Substance: ISOSORBIDE MONONITRATE
     Indication: Cardiac disorder
     Route: 065
     Dates: start: 2022
  6. LASIX [Concomitant]
     Active Substance: FUROSEMIDE
     Indication: Cardiac disorder
     Route: 065
     Dates: start: 2018
  7. PLAVIX [Concomitant]
     Active Substance: CLOPIDOGREL BISULFATE
     Indication: Cardiac disorder
     Route: 065
     Dates: start: 2018
  8. HEAD AND SHOULDERS [Concomitant]
     Active Substance: PYRITHIONE ZINC

REACTIONS (2)
  - Application site pruritus [Not Recovered/Not Resolved]
  - Inappropriate schedule of product administration [Unknown]

NARRATIVE: CASE EVENT DATE: 20220401
